FAERS Safety Report 4459748-5 (Version None)
Quarter: 2004Q3

REPORT INFORMATION
  Report Type: 
  Country: None (occurrence: None)
  Receive Date: 20040928
  Receipt Date: 20030923
  Transmission Date: 20050211
  Serious: No
  Sender: FDA-Public Use
  Company Number: US-BRISTOL-MYERS SQUIBB COMPANY-12390639

PATIENT
  Age: 4 Decade
  Sex: Female

DRUGS (1)
  1. KENALOG-40 [Suspect]
     Indication: SINUSITIS
     Dosage: DOSAGE: 40MG OF KENALOG-40 IN 1CC INJECTION
     Route: 051
     Dates: start: 20020101

REACTIONS (1)
  - INJECTION SITE ATROPHY [None]
